FAERS Safety Report 7730959-6 (Version None)
Quarter: 2011Q3

REPORT INFORMATION
  Report Type: 
  Country: None (occurrence: None)
  Receive Date: 20110906
  Receipt Date: 20110830
  Transmission Date: 20111222
  Serious: Yes (Other)
  Sender: FDA-Public Use
  Company Number: JP-BAYER-2011-067260

PATIENT
  Sex: Male
  Weight: 50 kg

DRUGS (7)
  1. OXYCODONE HCL [Suspect]
     Indication: METASTATIC PAIN
     Dosage: UNK
     Route: 048
     Dates: start: 20110525
  2. MAGNESIUM SULFATE [Concomitant]
     Indication: CONSTIPATION
     Dosage: 1500 MG, QD
     Route: 048
     Dates: start: 20110525
  3. ZOLPIDEM [Concomitant]
     Indication: INSOMNIA
     Dosage: UNK
     Route: 048
     Dates: start: 20110525
  4. NEXAVAR [Suspect]
     Indication: HEPATIC NEOPLASM MALIGNANT
     Dosage: 200 MG, QD
     Route: 048
     Dates: start: 20110623, end: 20110708
  5. FENTANYL CITRATE [Suspect]
     Indication: METASTATIC PAIN
     Dosage: 2 MG, QD
     Route: 062
     Dates: start: 20110620
  6. MYONAL [Concomitant]
     Indication: PAIN MANAGEMENT
     Dosage: 100 MG, QD
     Route: 048
     Dates: start: 20110530
  7. PROCHLORPERAZINE [Concomitant]
     Indication: NAUSEA
     Dosage: 15 MG, QD
     Route: 048
     Dates: start: 20110525

REACTIONS (5)
  - ASTERIXIS [None]
  - ABNORMAL BEHAVIOUR [None]
  - HEPATIC ENCEPHALOPATHY [None]
  - DELIRIUM [None]
  - SPEECH DISORDER [None]
